FAERS Safety Report 11024738 (Version 1)
Quarter: 2015Q2

REPORT INFORMATION
  Report Type: Spontaneous
  Country: US (occurrence: None)
  Receive Date: 20150410
  Receipt Date: 20150410
  Transmission Date: 20150821
  Serious: Yes (Hospitalization, Other)
  Sender: FDA-Public Use
  Company Number: ADR-2015-00669

PATIENT
  Age: 44 Year
  Sex: Female

DRUGS (2)
  1. FENTANYL INTRATHECAL [Suspect]
     Active Substance: FENTANYL
  2. BACLOFEN INTRATHECAL [Suspect]
     Active Substance: BACLOFEN
     Indication: SPINAL PAIN

REACTIONS (7)
  - Headache [None]
  - Sepsis [None]
  - Device power source issue [None]
  - Renal pain [None]
  - Vomiting [None]
  - Mouth injury [None]
  - Bite [None]

NARRATIVE: CASE EVENT DATE: 20150328
